FAERS Safety Report 8019795-3 (Version None)
Quarter: 2012Q1

REPORT INFORMATION
  Report Type: 
  Country: None (occurrence: None)
  Receive Date: 20120103
  Receipt Date: 20111208
  Transmission Date: 20120608
  Serious: No
  Sender: FDA-Public Use
  Company Number: US-BAYER-2011-118409

PATIENT
  Sex: Female

DRUGS (1)
  1. CIPROFLOXACIN [Suspect]

REACTIONS (6)
  - MOBILITY DECREASED [None]
  - TENDON DISORDER [None]
  - HYPOAESTHESIA [None]
  - TENDON PAIN [None]
  - PAIN [None]
  - ARTHRALGIA [None]
